FAERS Safety Report 4744050-4 (Version None)
Quarter: 2005Q3

REPORT INFORMATION
  Report Type: 
  Country: None (occurrence: None)
  Receive Date: 20050809
  Receipt Date: 20050801
  Transmission Date: 20060218
  Serious: Yes (Other)
  Sender: FDA-Public Use
  Company Number: US-2005-013865

PATIENT
  Age: 54 Year
  Sex: Male

DRUGS (1)
  1. MAGNEVIST INJECTION(GADOPENTETATE DIMEGLUMINE) INJECTION [Suspect]
     Indication: NUCLEAR MAGNETIC RESONANCE IMAGING
     Dosage: , AT 0.75MM/KG, 1 DOSE, INTRAVENOUS
     Route: 042
     Dates: start: 20050601, end: 20050601

REACTIONS (2)
  - AMNESIA [None]
  - VESTIBULAR NEURONITIS [None]
